FAERS Safety Report 10614638 (Version 1)
Quarter: 2014Q4

REPORT INFORMATION
  Report Type: Spontaneous
  Country: FR (occurrence: FR)
  Receive Date: 20141130
  Receipt Date: 20141130
  Transmission Date: 20150529
  Serious: Yes (Hospitalization)
  Sender: FDA-Public Use
  Company Number: FR-BRISTOL-MYERS SQUIBB COMPANY-21646161

PATIENT
  Age: 74 Year
  Sex: Male

DRUGS (3)
  1. LYRICA [Suspect]
     Active Substance: PREGABALIN
     Dosage: STOPPED ON 31OCT14?RESUMED ON UNK DATE
     Route: 048
     Dates: end: 20141031
  2. COUMADIN [Suspect]
     Active Substance: WARFARIN SODIUM
     Route: 048
     Dates: end: 20141103
  3. LEPONEX [Suspect]
     Active Substance: CLOZAPINE
     Route: 048
     Dates: start: 201407, end: 20141105

REACTIONS (1)
  - Pleurisy [Recovering/Resolving]
